FAERS Safety Report 5934179-7 (Version None)
Quarter: 2008Q4

REPORT INFORMATION
  Report Type: 
  Country: None (occurrence: None)
  Receive Date: 20081029
  Receipt Date: 20081020
  Transmission Date: 20090506
  Serious: Yes (Death)
  Sender: FDA-Public Use
  Company Number: B0543161A

PATIENT
  Age: 53 Year
  Sex: Male

DRUGS (6)
  1. KIVEXA [Suspect]
     Indication: HIV INFECTION
     Route: 048
     Dates: start: 20070709
  2. NORVIR [Suspect]
     Indication: HIV INFECTION
     Route: 048
     Dates: start: 20070709
  3. REYATAZ [Suspect]
     Indication: HIV INFECTION
     Route: 048
     Dates: start: 20070709
  4. COMBIVIR [Concomitant]
     Indication: HIV INFECTION
     Route: 048
  5. BACTRIM [Concomitant]
     Route: 048
  6. KALETRA [Concomitant]
     Indication: HIV INFECTION
     Route: 048

REACTIONS (1)
  - DEATH [None]
